FAERS Safety Report 8002315-7 (Version None)
Quarter: 2011Q4

REPORT INFORMATION
  Report Type: 
  Country: None (occurrence: None)
  Receive Date: 20111222
  Receipt Date: 20110405
  Transmission Date: 20120403
  Serious: No
  Sender: FDA-Public Use
  Company Number: US-GLAXOSMITHKLINE-A0921393A

PATIENT
  Age: 66 Year
  Sex: Female

DRUGS (1)
  1. NICOTINE POLACRILEX [Suspect]
     Indication: EX-TOBACCO USER

REACTIONS (6)
  - DISCOMFORT [None]
  - ORAL DISCOMFORT [None]
  - NASAL DISCOMFORT [None]
  - GLOSSODYNIA [None]
  - THROAT IRRITATION [None]
  - OROPHARYNGEAL PAIN [None]
